FAERS Safety Report 9321039 (Version 1)
Quarter: 2013Q2

REPORT INFORMATION
  Report Type: Report from Study
  Country: FR (occurrence: None)
  Receive Date: 20130528
  Receipt Date: 20130528
  Transmission Date: 20140414
  Serious: Yes (Other)
  Sender: FDA-Public Use
  Company Number: 2013AP004034

PATIENT
  Age: 8 Year
  Sex: 0

DRUGS (1)
  1. FERRIPROX [Suspect]
     Indication: SICKLE CELL ANAEMIA

REACTIONS (3)
  - Hepatocellular injury [None]
  - Cholestasis [None]
  - Cytomegalovirus test positive [None]
